FAERS Safety Report 21123557 (Version 1)
Quarter: 2022Q3

REPORT INFORMATION
  Report Type: Spontaneous
  Country: US (occurrence: US)
  Receive Date: 20220724
  Receipt Date: 20220724
  Transmission Date: 20221026
  Serious: No
  Sender: FDA-Public Use
  Company Number: US-009507513-2207USA002079

PATIENT
  Sex: Female

DRUGS (3)
  1. JANUVIA [Suspect]
     Active Substance: SITAGLIPTIN PHOSPHATE
     Dosage: 100 MILLIGRAM, ONCE DAILY (QD)
     Route: 048
     Dates: end: 202206
  2. GLIPIZIDE [Suspect]
     Active Substance: GLIPIZIDE
     Dosage: 2 MILLIGRAM
  3. GLIPIZIDE [Suspect]
     Active Substance: GLIPIZIDE
     Dosage: 5 MILLIGRAM
     Dates: start: 2022

REACTIONS (3)
  - Feeling abnormal [Not Recovered/Not Resolved]
  - Gait disturbance [Not Recovered/Not Resolved]
  - Palpitations [Not Recovered/Not Resolved]

NARRATIVE: CASE EVENT DATE: 20220101
